FAERS Safety Report 21632391 (Version 4)
Quarter: 2023Q1

REPORT INFORMATION
  Report Type: Spontaneous
  Country: US (occurrence: US)
  Receive Date: 20221123
  Receipt Date: 20230123
  Transmission Date: 20230417
  Serious: No
  Sender: FDA-Public Use
  Company Number: US-GLAXOSMITHKLINE-US2022172024

PATIENT
  Sex: Female

DRUGS (3)
  1. ZEJULA [Suspect]
     Active Substance: NIRAPARIB
     Indication: Ovarian cancer
     Dosage: 300 MG, QD
     Route: 048
     Dates: start: 20221021
  2. ZEJULA [Suspect]
     Active Substance: NIRAPARIB
     Dosage: 300 MG, QD
  3. ZEJULA [Suspect]
     Active Substance: NIRAPARIB
     Dosage: 300 MG, QD
     Route: 048

REACTIONS (14)
  - Abdominal discomfort [Not Recovered/Not Resolved]
  - Fatigue [Not Recovered/Not Resolved]
  - Bone pain [Unknown]
  - Insomnia [Recovering/Resolving]
  - Palpitations [Recovering/Resolving]
  - Headache [Unknown]
  - Blood sodium decreased [Unknown]
  - Dyspepsia [Unknown]
  - Dizziness [Unknown]
  - Blood calcium decreased [Unknown]
  - Asthenia [Unknown]
  - Hot flush [Unknown]
  - Haemoglobin decreased [Unknown]
  - Product dose omission issue [Unknown]
